FAERS Safety Report 8322985-3 (Version None)
Quarter: 2012Q2

REPORT INFORMATION
  Report Type: 
  Country: None (occurrence: None)
  Receive Date: 20120430
  Receipt Date: 20120423
  Transmission Date: 20120825
  Serious: Yes (Death, Other)
  Sender: FDA-Public Use
  Company Number: US-TEVA-335244USA

PATIENT
  Age: 63 Year
  Sex: Female

DRUGS (4)
  1. ISOSORBIDE DINITRATE [Concomitant]
     Indication: CORONARY ARTERY INSUFFICIENCY
     Route: 065
  2. VALSARTAN [Concomitant]
     Indication: HYPERTENSION
     Route: 065
  3. FUROSEMIDE [Suspect]
     Indication: HYPERTENSION
     Route: 065
  4. AMIODARONE HCL [Concomitant]
     Indication: ATRIAL FIBRILLATION
     Route: 065

REACTIONS (2)
  - PANCREATITIS ACUTE [None]
  - CARDIAC ARREST [None]
